FAERS Safety Report 25451444 (Version 1)
Quarter: 2025Q2

REPORT INFORMATION
  Report Type: Report from Study
  Country: US (occurrence: US)
  Receive Date: 20250618
  Receipt Date: 20250618
  Transmission Date: 20250717
  Serious: Yes (Hospitalization)
  Sender: EISAI
  Company Number: US-Eisai-EC-2025-190719

PATIENT
  Age: 47 Year
  Sex: Male

DRUGS (2)
  1. LENVIMA [Suspect]
     Active Substance: LENVATINIB
     Indication: Malignant neoplasm of thymus
     Dosage: WILL MISS 4 DAYS OF MED AS MED WILL DELIVER ON 09-JUN-2025
     Dates: end: 202506
  2. LENVIMA [Suspect]
     Active Substance: LENVATINIB
     Dates: start: 202506

REACTIONS (4)
  - Myasthenia gravis [Unknown]
  - Off label use [Unknown]
  - Hypertension [Unknown]
  - Fatigue [Unknown]

NARRATIVE: CASE EVENT DATE: 20250101
